FAERS Safety Report 15301548 (Version 1)
Quarter: 2018Q3

REPORT INFORMATION
  Report Type: Spontaneous
  Country: US (occurrence: US)
  Receive Date: 20180821
  Receipt Date: 20180821
  Transmission Date: 20181010
  Serious: No
  Sender: FDA-Public Use
  Company Number: US-SA-2018SA230872

PATIENT
  Sex: Male

DRUGS (2)
  1. XELJANZ [Concomitant]
     Active Substance: TOFACITINIB CITRATE
  2. KEVZARA [Suspect]
     Active Substance: SARILUMAB
     Dosage: UNK, QOW

REACTIONS (2)
  - Skin discolouration [Unknown]
  - Dry skin [Unknown]
